FAERS Safety Report 8357748-6 (Version None)
Quarter: 2012Q2

REPORT INFORMATION
  Report Type: 
  Country: None (occurrence: None)
  Receive Date: 20120514
  Receipt Date: 20120509
  Transmission Date: 20120825
  Serious: Yes (Other)
  Sender: FDA-Public Use
  Company Number: JP-PFIZER INC-2012113593

PATIENT
  Sex: Male

DRUGS (1)
  1. HALCION [Suspect]
     Dosage: 0.25 MG, DAILY

REACTIONS (3)
  - BENIGN PROSTATIC HYPERPLASIA [None]
  - MUSCULOSKELETAL STIFFNESS [None]
  - SPINAL DISORDER [None]
